FAERS Safety Report 6360927-0 (Version None)
Quarter: 2009Q3

REPORT INFORMATION
  Report Type: 
  Country: None (occurrence: None)
  Receive Date: 20090918
  Receipt Date: 20090909
  Transmission Date: 20100115
  Serious: Yes (Hospitalization)
  Sender: FDA-Public Use
  Company Number: PHHY2009FR38918

PATIENT
  Sex: Female

DRUGS (2)
  1. ACLASTA [Suspect]
     Dosage: UNK
     Dates: start: 20080101
  2. ACLASTA [Suspect]
     Dosage: UNK
     Dates: start: 20090831

REACTIONS (4)
  - BONE PAIN [None]
  - HYPERSENSITIVITY [None]
  - OEDEMA [None]
  - SKIN REACTION [None]
